FAERS Safety Report 4333021-8 (Version None)
Quarter: 2004Q2

REPORT INFORMATION
  Report Type: 
  Country: None (occurrence: None)
  Receive Date: 20040406
  Receipt Date: 20040330
  Transmission Date: 20050107
  Serious: Yes (Other)
  Sender: FDA-Public Use
  Company Number: PHEH2004US03612

PATIENT
  Age: 59 Year
  Sex: Female

DRUGS (10)
  1. ZELNORM [Suspect]
     Indication: CONSTIPATION
     Dosage: 6 MG, BID
     Route: 048
  2. GLUCOVANCE [Concomitant]
  3. ACTOS                                   /USA/ [Concomitant]
  4. LANTUS [Concomitant]
  5. ZOCOR [Concomitant]
  6. ESTROGEN NOS [Concomitant]
     Route: 062
  7. PROMETRIUM [Concomitant]
  8. THYROID TAB [Concomitant]
  9. SPIRONOLACTONE [Concomitant]
  10. ATACAND [Concomitant]

REACTIONS (1)
  - DIVERTICULITIS [None]
